FAERS Safety Report 6870898-6 (Version None)
Quarter: 2010Q3

REPORT INFORMATION
  Report Type: 
  Country: None (occurrence: None)
  Receive Date: 20100723
  Receipt Date: 20100712
  Transmission Date: 20110219
  Serious: Yes (Other)
  Sender: FDA-Public Use
  Company Number: PHHY2010IL46323

PATIENT
  Age: 74 Year
  Sex: Male

DRUGS (6)
  1. RASILEZ [Suspect]
     Indication: HYPERTENSION
     Dosage: 300 MG, QD
     Route: 048
  2. INSULIN [Concomitant]
  3. LOSARTAN POSTASSIUM [Concomitant]
  4. ASPIRIN [Concomitant]
  5. STATIN (NOT SPECIFIED) [Concomitant]
  6. DULOXETINE HYDROCHLORIDE [Concomitant]

REACTIONS (1)
  - PROTEINURIA [None]
